FAERS Safety Report 24705471 (Version 2)
Quarter: 2024Q4

REPORT INFORMATION
  Report Type: Spontaneous
  Country: IN (occurrence: IN)
  Receive Date: 20241206
  Receipt Date: 20241220
  Transmission Date: 20250115
  Serious: Yes (Other)
  Sender: RANBAXY
  Company Number: IN-SUN PHARMACEUTICAL INDUSTRIES LTD.-2024R1-482994

PATIENT
  Age: 4 Decade
  Sex: Female

DRUGS (4)
  1. ADRIAMYCIN [Suspect]
     Active Substance: DOXORUBICIN HYDROCHLORIDE
     Indication: Breast cancer
     Dosage: UNK (FOUR CYCLES)
     Route: 065
  2. EXEMESTANE [Suspect]
     Active Substance: EXEMESTANE
     Indication: Breast cancer
     Dosage: UNK
     Route: 065
  3. PACLITAXEL [Suspect]
     Active Substance: PACLITAXEL
     Indication: Breast cancer
     Dosage: UNK (FOUR CYCLES)
     Route: 065
  4. CYCLOPHOSPHAMIDE [Suspect]
     Active Substance: CYCLOPHOSPHAMIDE
     Indication: Breast cancer
     Dosage: UNK (FOUR CYCLES)
     Route: 065

REACTIONS (1)
  - Sweat gland tumour [Recovered/Resolved]
